FAERS Safety Report 26002123 (Version 1)
Quarter: 2025Q4

REPORT INFORMATION
  Report Type: Spontaneous
  Country: KW (occurrence: None)
  Receive Date: 20251105
  Receipt Date: 20251105
  Transmission Date: 20260118
  Serious: Yes (Hospitalization, Other)
  Sender: UCB
  Company Number: KW-UCBSA-2025069527

PATIENT
  Age: 38 Year
  Weight: 69 kg

DRUGS (2)
  1. VIMPAT [Suspect]
     Active Substance: LACOSAMIDE
     Indication: Partial seizures
     Dosage: 200 MILLIGRAM
  2. VIMPAT [Suspect]
     Active Substance: LACOSAMIDE
     Indication: Off label use
     Dosage: 100 MILLIGRAM, 2X/DAY (BID)

REACTIONS (3)
  - Thrombocytopenia [Recovered/Resolved]
  - Haemorrhage intracranial [Recovered/Resolved]
  - Off label use [Unknown]
